FAERS Safety Report 17270582 (Version 2)
Quarter: 2020Q1

REPORT INFORMATION
  Report Type: Report from Study
  Country: CA (occurrence: CA)
  Receive Date: 20200114
  Receipt Date: 20200127
  Transmission Date: 20200409
  Serious: Yes (Other)
  Sender: FDA-Public Use
  Company Number: CA-HLSUS-2019-CA-001064

PATIENT
  Age: 46 Year
  Sex: Male

DRUGS (1)
  1. CLOZARIL [Suspect]
     Active Substance: CLOZAPINE
     Route: 048
     Dates: start: 20110106, end: 20200102

REACTIONS (6)
  - Pyrexia [Unknown]
  - Neutropenia [Unknown]
  - Leukopenia [Unknown]
  - Diarrhoea [Unknown]
  - Carcinoembryonic antigen increased [Unknown]
  - Haemoglobin decreased [Unknown]

NARRATIVE: CASE EVENT DATE: 20190906
